FAERS Safety Report 18442513 (Version 3)
Quarter: 2020Q4

REPORT INFORMATION
  Report Type: Report from Study
  Country: MX (occurrence: MX)
  Receive Date: 20201029
  Receipt Date: 20201117
  Transmission Date: 20210114
  Serious: Yes (Hospitalization)
  Sender: FDA-Public Use
  Company Number: MX-TAKEDA-MX202029215

PATIENT
  Age: 3 Year
  Sex: Male
  Weight: 21 kg

DRUGS (1)
  1. IDURSULFASE [Suspect]
     Active Substance: IDURSULFASE
     Indication: MUCOPOLYSACCHARIDOSIS II
     Dosage: 1 DOSAGE FORM, OTHER (6 MG/3ML), OTHER (EVERY 8 DAYS)
     Route: 042
     Dates: start: 20180306

REACTIONS (5)
  - Hospitalisation [Unknown]
  - Illness [Unknown]
  - Pyrexia [Not Recovered/Not Resolved]
  - Product dose omission issue [Unknown]
  - Influenza [Unknown]

NARRATIVE: CASE EVENT DATE: 20200903
